FAERS Safety Report 5309825-1 (Version None)
Quarter: 2007Q2

REPORT INFORMATION
  Report Type: 
  Country: None (occurrence: None)
  Receive Date: 20070427
  Receipt Date: 20070416
  Transmission Date: 20071010
  Serious: Yes (Other)
  Sender: FDA-Public Use
  Company Number: US-ELI_LILLY_AND_COMPANY-US200701001113

PATIENT
  Age: 24 Year
  Sex: Male
  Weight: 77.097 kg

DRUGS (2)
  1. STRATTERA [Suspect]
     Indication: ATTENTION DEFICIT/HYPERACTIVITY DISORDER
     Dosage: 40 MG, DAILY (1/D)
     Dates: start: 20020801
  2. RISPERDAL                               /SWE/ [Concomitant]
     Indication: BIPOLAR I DISORDER
     Dosage: 1 MG, 4/D

REACTIONS (1)
  - HEPATITIS C [None]
